FAERS Safety Report 10362786 (Version 4)
Quarter: 2014Q3

REPORT INFORMATION
  Report Type: Spontaneous
  Country: FI (occurrence: FI)
  Receive Date: 20140805
  Receipt Date: 20140911
  Transmission Date: 20150326
  Serious: Yes (Other)
  Sender: FDA-Public Use
  Company Number: PHHY2014FI094686

PATIENT
  Age: 45 Year
  Sex: Female

DRUGS (8)
  1. NEXIUM [Concomitant]
     Active Substance: ESOMEPRAZOLE MAGNESIUM
     Dosage: UNK UKN, UNK
  2. ESTRADOT [Suspect]
     Active Substance: ESTRADIOL
     Dosage: 37.5 UG, UNK
     Dates: start: 2013
  3. ESTRADOT [Suspect]
     Active Substance: ESTRADIOL
     Dosage: 50 UNK, UNK
  4. ESTRADOT [Suspect]
     Active Substance: ESTRADIOL
     Dosage: 100 UG, UNK
     Dates: start: 2013, end: 20140730
  5. TRIPTYL [Concomitant]
     Indication: PAIN
     Dosage: 1 DF, DAILY
  6. ESTRADOT [Suspect]
     Active Substance: ESTRADIOL
     Indication: HORMONE REPLACEMENT THERAPY
     Dosage: 75 UG, UNK
  7. ESTRADOT [Suspect]
     Active Substance: ESTRADIOL
     Dosage: 137.5 UG, UNK
     Dates: end: 2013
  8. ESTRADOT [Suspect]
     Active Substance: ESTRADIOL
     Dosage: 100 UG, UNK

REACTIONS (16)
  - Tremor [Recovered/Resolved]
  - Blood oestrogen decreased [Unknown]
  - Dermal absorption impaired [Unknown]
  - Hyperhidrosis [Recovered/Resolved]
  - Nervousness [Recovered/Resolved]
  - Application site pruritus [Recovered/Resolved]
  - Chest discomfort [Recovered/Resolved]
  - Restlessness [Recovered/Resolved]
  - Fatigue [Recovered/Resolved]
  - Arrhythmia [Recovered/Resolved]
  - Wrong technique in drug usage process [Recovered/Resolved]
  - Insomnia [Recovered/Resolved]
  - Feeling abnormal [Recovered/Resolved]
  - Intentional overdose [Recovered/Resolved]
  - Rash [Recovered/Resolved]
  - Application site erythema [Recovered/Resolved]

NARRATIVE: CASE EVENT DATE: 2013
